FAERS Safety Report 9311501 (Version 4)
Quarter: 2014Q1

REPORT INFORMATION
  Report Type: Spontaneous
  Country: US (occurrence: US)
  Receive Date: 20130528
  Receipt Date: 20140130
  Transmission Date: 20141002
  Serious: Yes (Hospitalization, Other)
  Sender: FDA-Public Use
  Company Number: US-BAXTER-2013BAX019086

PATIENT
  Age: 64 Year
  Sex: Male

DRUGS (8)
  1. DIANEAL LOW CALCIUM [Suspect]
     Indication: PERITONEAL DIALYSIS
     Route: 033
     Dates: start: 20130129, end: 201303
  2. DIANEAL LOW CALCIUM [Suspect]
     Route: 033
     Dates: start: 2013
  3. DIANEAL LOW CALCIUM [Suspect]
     Indication: PERITONEAL DIALYSIS
     Route: 033
     Dates: start: 20130129, end: 201303
  4. DIANEAL LOW CALCIUM [Suspect]
     Route: 033
     Dates: start: 2013
  5. DIANEAL LOW CALCIUM (ULTRABAG) [Suspect]
     Indication: PERITONEAL DIALYSIS
     Route: 033
     Dates: start: 20130129, end: 201303
  6. DIANEAL LOW CALCIUM (ULTRABAG) [Suspect]
     Route: 033
     Dates: start: 2013
  7. EXTRANEAL [Suspect]
     Indication: PERITONEAL DIALYSIS
     Route: 033
     Dates: start: 20130129, end: 201303
  8. EXTRANEAL [Suspect]
     Route: 033
     Dates: start: 2013

REACTIONS (6)
  - Cholecystitis [Unknown]
  - Cholecystitis infective [Recovered/Resolved]
  - Localised infection [Recovered/Resolved]
  - Device related infection [Unknown]
  - Peritonitis bacterial [Recovered/Resolved]
  - Catheter site infection [Recovering/Resolving]
